FAERS Safety Report 7570277 (Version 2)
Quarter: 2012Q4

REPORT INFORMATION
  Report Type: 
  Country: US (occurrence: US)
  Receive Date: 20100901
  Receipt Date: 20120910
  Transmission Date: 20130627
  Serious: Yes (Hospitalization)
  Sender: FDA-Public Use
  Company Number: US-US-EMD SERONO, INC.-7010342

PATIENT
  Age: 42 None
  Sex: Female
  Weight: 66 kg

DRUGS (8)
  1. REBIF [Suspect]
     Indication: MULTIPLE SCLEROSIS
     Route: 058
     Dates: start: 20060707
  2. LOVASTATIN [Concomitant]
     Indication: BLOOD CHOLESTEROL INCREASED
  3. METOPROLOL [Concomitant]
     Indication: HYPERTENSION
  4. LEVOTHYROXINE [Concomitant]
     Indication: THYROID FUNCTION TEST ABNORMAL
  5. PLAVIX [Concomitant]
     Indication: MYOCARDIAL INFARCTION
     Dates: start: 200409
  6. PEPCID [Concomitant]
     Indication: GASTROOESOPHAGEAL REFLUX DISEASE
  7. ASPIRIN [Concomitant]
     Indication: MYOCARDIAL INFARCTION
     Dates: start: 200409
  8. XANAX [Concomitant]
     Indication: NERVOUSNESS

REACTIONS (6)
  - Coronary artery occlusion [Recovered/Resolved]
  - Blood pressure increased [Recovered/Resolved]
  - Cardiac enzymes increased [Unknown]
  - Coronary arterial stent insertion [Unknown]
  - Malaise [Recovered/Resolved]
  - Vision blurred [Unknown]
